FAERS Safety Report 8162718-7 (Version None)
Quarter: 2012Q1

REPORT INFORMATION
  Report Type: 
  Country: None (occurrence: None)
  Receive Date: 20120224
  Receipt Date: 20120215
  Transmission Date: 20120608
  Serious: Yes (Other)
  Sender: FDA-Public Use
  Company Number: CA-JNJFOC-20120103926

PATIENT
  Sex: Male
  Weight: 63.5 kg

DRUGS (4)
  1. EXTRA STRENGTH TYLENOL COLD AND SINUS DAYTIME [Suspect]
     Indication: PRODUCT USED FOR UNKNOWN INDICATION
     Route: 065
     Dates: start: 20120102
  2. NEO CITRAN [Suspect]
     Indication: NASOPHARYNGITIS
     Route: 065
     Dates: start: 20120101, end: 20120104
  3. IBUPROFEN (ADVIL) [Suspect]
     Indication: PRODUCT USED FOR UNKNOWN INDICATION
  4. ADVIL COLD AND SINUS [Suspect]
     Indication: NASAL CONGESTION
     Route: 065
     Dates: start: 20120101, end: 20120104

REACTIONS (3)
  - MYOCARDITIS INFECTIOUS [None]
  - DEHYDRATION [None]
  - PHARYNGITIS STREPTOCOCCAL [None]
